FAERS Safety Report 6234178-4 (Version None)
Quarter: 2009Q2

REPORT INFORMATION
  Report Type: 
  Country: None (occurrence: None)
  Receive Date: 20090611
  Receipt Date: 20090107
  Transmission Date: 20091009
  Serious: Yes (Other)
  Sender: FDA-Public Use
  Company Number: WAES 0901USA00886

PATIENT
  Age: 65 Year
  Sex: Female

DRUGS (6)
  1. FOSAMAX PLUS D [Suspect]
     Indication: OSTEOPENIA
     Dosage: 70 MG/WKY/PO
     Route: 048
     Dates: start: 20050101, end: 20070101
  2. FOSAMAX PLUS D [Suspect]
     Indication: RESORPTION BONE INCREASED
     Dosage: 70 MG/WKY/PO
     Route: 048
     Dates: start: 20050101, end: 20070101
  3. FOSAMAX [Suspect]
     Indication: OSTEOPENIA
     Dosage: WKY/PO
     Route: 048
     Dates: start: 20060725, end: 20061012
  4. FOSAMAX [Suspect]
     Indication: RESORPTION BONE INCREASED
     Dosage: WKY/PO
     Route: 048
     Dates: start: 20060725, end: 20061012
  5. PREMARIN [Concomitant]
  6. PROVERA [Concomitant]

REACTIONS (14)
  - FALL [None]
  - FATIGUE [None]
  - FOOT FRACTURE [None]
  - HYPERLIPIDAEMIA [None]
  - MENOPAUSAL SYMPTOMS [None]
  - OSTEONECROSIS [None]
  - PAIN [None]
  - RASH ERYTHEMATOUS [None]
  - RESORPTION BONE INCREASED [None]
  - SEBORRHOEIC KERATOSIS [None]
  - URINARY TRACT INFECTION [None]
  - UTERINE PROLAPSE [None]
  - VAGINAL HAEMORRHAGE [None]
  - VULVOVAGINAL DRYNESS [None]
